FAERS Safety Report 9059398 (Version 2)
Quarter: 2013Q1

REPORT INFORMATION
  Report Type: Report from Study
  Country: JP (occurrence: JP)
  Receive Date: 20130211
  Receipt Date: 20130308
  Transmission Date: 20140127
  Serious: Yes (Hospitalization)
  Sender: FDA-Public Use
  Company Number: JP-GLAXOSMITHKLINE-B0864999A

PATIENT
  Age: 78 None
  Sex: Female
  Weight: 44 kg

DRUGS (4)
  1. REVOLADE [Suspect]
     Indication: IDIOPATHIC THROMBOCYTOPENIC PURPURA
     Route: 048
     Dates: start: 20120518, end: 20120713
  2. PREDONINE [Concomitant]
     Indication: IDIOPATHIC THROMBOCYTOPENIC PURPURA
     Route: 048
  3. MAGMITT [Concomitant]
     Indication: CONSTIPATION
     Route: 048
  4. PANTOSIN [Concomitant]
     Indication: CONSTIPATION
     Route: 048

REACTIONS (2)
  - Depression [Recovered/Resolved]
  - Arthralgia [Recovered/Resolved]
